FAERS Safety Report 11302018 (Version 1)
Quarter: 2015Q3

REPORT INFORMATION
  Report Type: Spontaneous
  Country: US (occurrence: US)
  Receive Date: 20150722
  Receipt Date: 20150722
  Transmission Date: 20151125
  Serious: No
  Sender: FDA-Public Use
  Company Number: US-ELI_LILLY_AND_COMPANY-US200807001054

PATIENT
  Age: 73 Year
  Sex: Female

DRUGS (2)
  1. EVISTA [Suspect]
     Active Substance: RALOXIFENE HYDROCHLORIDE
     Dosage: 60 MG, UNK
     Dates: start: 1998
  2. OXYBUTYNIN [Concomitant]
     Active Substance: OXYBUTYNIN

REACTIONS (6)
  - Skin abrasion [Recovered/Resolved]
  - Musculoskeletal pain [Unknown]
  - Thermal burn [Unknown]
  - Back disorder [Recovered/Resolved]
  - Accident [Recovered/Resolved]
  - Haematoma [Recovered/Resolved]

NARRATIVE: CASE EVENT DATE: 20080619
